FAERS Safety Report 11955772 (Version 2)
Quarter: 2016Q1

REPORT INFORMATION
  Report Type: Spontaneous
  Country: US (occurrence: US)
  Receive Date: 20160125
  Receipt Date: 20160202
  Transmission Date: 20160526
  Serious: No
  Sender: FDA-Public Use
  Company Number: US-ABBVIE-15K-163-1351967-00

PATIENT
  Sex: Female

DRUGS (1)
  1. HUMIRA [Suspect]
     Active Substance: ADALIMUMAB
     Indication: ANKYLOSING SPONDYLITIS
     Route: 065
     Dates: start: 201501

REACTIONS (3)
  - Drug dispensing error [Not Recovered/Not Resolved]
  - Urticaria [Not Recovered/Not Resolved]
  - Drug prescribing error [Recovered/Resolved]

NARRATIVE: CASE EVENT DATE: 2015
